FAERS Safety Report 11080093 (Version 2)
Quarter: 2015Q2

REPORT INFORMATION
  Report Type: Spontaneous
  Country: US (occurrence: US)
  Receive Date: 20150430
  Receipt Date: 20150511
  Transmission Date: 20150821
  Serious: Yes (Other)
  Sender: FDA-Public Use
  Company Number: US-LPDUSPRD-20150280

PATIENT
  Age: 36 Year
  Sex: Female

DRUGS (1)
  1. VENOFER [Suspect]
     Active Substance: IRON SUCROSE
     Indication: IRON DEFICIENCY ANAEMIA
     Dosage: UNKNOWN DOSE EVERY 3 MONTHS
     Route: 042

REACTIONS (4)
  - Gait disturbance [Unknown]
  - Hypersensitivity [Unknown]
  - Pain [Unknown]
  - Arthralgia [Unknown]
